FAERS Safety Report 20300434 (Version 8)
Quarter: 2023Q1

REPORT INFORMATION
  Report Type: 
  Country: None (occurrence: None)
  Receive Date: 20220105
  Receipt Date: 20230120
  Transmission Date: 20230418
  Serious: Yes (Hospitalization, Congenital Anomaly, Other)
  Sender: FDA-Public Use
  Company Number: None

PATIENT
  Age: 34 Year
  Sex: Female

DRUGS (1)
  1. MYORISAN [Suspect]
     Active Substance: ISOTRETINOIN

REACTIONS (21)
  - Exposure during pregnancy [Recovered/Resolved]
  - Off label use [Recovered/Resolved]
  - Headache [Not Recovered/Not Resolved]
  - Nausea [Recovered/Resolved]
  - Renal dysplasia [Not Recovered/Not Resolved]
  - Genitalia external ambiguous [Recovered/Resolved]
  - Oligohydramnios [Recovered/Resolved]
  - Vaginal haemorrhage [Recovered/Resolved]
  - Spina bifida [Recovered/Resolved]
  - Foetal growth restriction [Recovered/Resolved]
  - Nonreassuring foetal heart rate pattern [Recovered/Resolved]
  - Premature labour [Recovered/Resolved]
  - Premature delivery [Recovered/Resolved]
  - Anal atresia [Not Recovered/Not Resolved]
  - Renal fusion anomaly [Not Recovered/Not Resolved]
  - Premature baby [Recovered/Resolved]
  - Renal impairment [Not Recovered/Not Resolved]
  - Pelvic kidney [Not Recovered/Not Resolved]
  - Caesarean section [Recovered/Resolved]
  - Low birth weight baby [Unknown]
  - Premature baby death [Fatal]

NARRATIVE: CASE EVENT DATE: 20220307
